FAERS Safety Report 7896848-1 (Version None)
Quarter: 2011Q4

REPORT INFORMATION
  Report Type: 
  Country: None (occurrence: None)
  Receive Date: 20111104
  Receipt Date: 20111104
  Transmission Date: 20120403
  Serious: Yes (Disabling, Other)
  Sender: FDA-Public Use
  Company Number: None

PATIENT
  Age: 70 Year
  Sex: Female
  Weight: 49.8957 kg

DRUGS (4)
  1. FEXOFENADINE HCL AND PSEUDOEPHEDRINE HCL [Suspect]
     Indication: EAR DISCOMFORT
     Dosage: 1 TABLET AM + PM
     Dates: start: 20110622
  2. FEXOFENADINE HCL AND PSEUDOEPHEDRINE HCL [Suspect]
     Indication: EAR DISCOMFORT
     Dosage: 1 TABLET AM + PM
     Dates: start: 20110623
  3. FEXOFENADINE HCL AND PSEUDOEPHEDRINE HCL [Suspect]
     Indication: EAR DISCOMFORT
     Dosage: 1 TABLET AM + PM
     Dates: start: 20110620
  4. FEXOFENADINE HCL AND PSEUDOEPHEDRINE HCL [Suspect]
     Indication: EAR DISCOMFORT
     Dosage: 1 TABLET AM + PM
     Dates: start: 20110621

REACTIONS (2)
  - HEART RATE INCREASED [None]
  - TINNITUS [None]
